FAERS Safety Report 24014067 (Version 1)
Quarter: 2024Q2

REPORT INFORMATION
  Report Type: Spontaneous
  Country: US (occurrence: US)
  Receive Date: 20240626
  Receipt Date: 20240626
  Transmission Date: 20240716
  Serious: Yes (Hospitalization)
  Sender: FDA-Public Use
  Company Number: US-JNJFOC-20240641609

PATIENT
  Age: 47 Year
  Sex: Female

DRUGS (1)
  1. ACETAMINOPHEN [Suspect]
     Active Substance: ACETAMINOPHEN
     Indication: Abdominal pain
     Dosage: SHE ESTIMATED TAKING ONE TO TWO TABLETS OF 500 MG ACETAMINOPHEN EVERY TWO TO THREE HOURS OVER THE PA
     Route: 048
     Dates: start: 2023

REACTIONS (8)
  - Drug-induced liver injury [Recovering/Resolving]
  - Tachycardia [Unknown]
  - Haemoglobin decreased [Recovering/Resolving]
  - Blood creatinine decreased [Recovering/Resolving]
  - Product use in unapproved indication [Unknown]
  - International normalised ratio increased [Recovering/Resolving]
  - Prothrombin time ratio increased [Recovering/Resolving]
  - Overdose [Unknown]

NARRATIVE: CASE EVENT DATE: 20230101
